FAERS Safety Report 12978815 (Version 1)
Quarter: 2016Q4

REPORT INFORMATION
  Report Type: Spontaneous
  Country: US (occurrence: US)
  Receive Date: 20161128
  Receipt Date: 20161128
  Transmission Date: 20170207
  Serious: No
  Sender: FDA-Public Use
  Company Number: None

PATIENT

DRUGS (2)
  1. ACETAMINOPHEN 500 MG [Suspect]
     Active Substance: ACETAMINOPHEN
  2. ACETAMINOPHEN 325 MG [Suspect]
     Active Substance: ACETAMINOPHEN

REACTIONS (2)
  - Drug dispensing error [None]
  - Incorrect drug dosage form administered [None]
